FAERS Safety Report 5006576-8 (Version None)
Quarter: 2006Q2

REPORT INFORMATION
  Report Type: 
  Country: None (occurrence: None)
  Receive Date: 20060516
  Receipt Date: 20060430
  Transmission Date: 20061013
  Serious: Yes (Other)
  Sender: FDA-Public Use
  Company Number: IL200605000087

PATIENT
  Age: 80 Year
  Sex: Female

DRUGS (7)
  1. CYMBALTA [Suspect]
     Indication: SOMATISATION DISORDER
     Dosage: SEE IMAGE
     Route: 048
     Dates: start: 20060130
  2. CYMBALTA [Suspect]
     Indication: SOMATISATION DISORDER
     Dosage: SEE IMAGE
     Route: 048
     Dates: start: 20060306
  3. CYMBALTA [Suspect]
     Indication: SOMATISATION DISORDER
     Dosage: SEE IMAGE
     Route: 048
     Dates: start: 20060323
  4. CYMBALTA [Suspect]
     Indication: SOMATISATION DISORDER
     Dosage: SEE IMAGE
     Route: 048
     Dates: start: 20060327
  5. PAROXETINE [Concomitant]
  6. SULPRIL (SULPIRIDE) [Concomitant]
  7. ZUCLOPENTHIXOL HYDROCHLORIDE (ZUCLOPENTHIXOL HYDROCHLORIDE) [Concomitant]

REACTIONS (5)
  - DELUSIONAL DISORDER, SOMATIC TYPE [None]
  - DISEASE RECURRENCE [None]
  - HALLUCINATION [None]
  - PARANOIA [None]
  - RESTLESSNESS [None]
